FAERS Safety Report 5401649-X (Version None)
Quarter: 2007Q3

REPORT INFORMATION
  Report Type: 
  Country: None (occurrence: None)
  Receive Date: 20070731
  Receipt Date: 20070719
  Transmission Date: 20080115
  Serious: Yes (Other)
  Sender: FDA-Public Use
  Company Number: US-PFIZER INC-2007038173

PATIENT
  Sex: Male

DRUGS (7)
  1. GLYBURIDE [Suspect]
     Indication: DIABETES MELLITUS
     Dates: start: 20070101, end: 20070101
  2. METFORMIN HCL [Suspect]
     Indication: DIABETES MELLITUS
  3. ACTOS [Concomitant]
  4. CLOPIDOGREL [Concomitant]
  5. SIMVASTATIN [Concomitant]
  6. VITAMIN CAP [Concomitant]
  7. GLUCOVANCE [Concomitant]

REACTIONS (8)
  - DIABETES MELLITUS [None]
  - DIZZINESS [None]
  - DYSPNOEA [None]
  - HEART RATE INCREASED [None]
  - MUSCLE SPASMS [None]
  - PALPITATIONS [None]
  - STOMACH DISCOMFORT [None]
  - TOOTH INFECTION [None]
